FAERS Safety Report 19408876 (Version 1)
Quarter: 2021Q2

REPORT INFORMATION
  Report Type: Other
  Country: AR (occurrence: AR)
  Receive Date: 20210613
  Receipt Date: 20210613
  Transmission Date: 20210717
  Serious: Yes (Life-Threatening, Hospitalization)
  Sender: FDA-Public Use
  Company Number: AR-NOSTRUM LABORATORIES, INC.-2112661

PATIENT
  Age: 17 Year
  Sex: Female

DRUGS (1)
  1. DAPSONE. [Suspect]
     Active Substance: DAPSONE
     Indication: INTENTIONAL OVERDOSE
     Route: 048

REACTIONS (5)
  - Acute respiratory failure [Recovered/Resolved]
  - Metabolic acidosis [Recovered/Resolved]
  - Intentional overdose [Recovered/Resolved]
  - Mental status changes [Recovered/Resolved]
  - Methaemoglobinaemia [Recovered/Resolved]
